FAERS Safety Report 7455840-1 (Version None)
Quarter: 2011Q2

REPORT INFORMATION
  Report Type: 
  Country: None (occurrence: None)
  Receive Date: 20110503
  Receipt Date: 20110427
  Transmission Date: 20111010
  Serious: Yes (Life-Threatening, Hospitalization, Other)
  Sender: FDA-Public Use
  Company Number: UA-ASTRAZENECA-2011SE23103

PATIENT
  Age: 18415 Day
  Sex: Female

DRUGS (9)
  1. SEROQUEL XR [Suspect]
     Indication: EMOTIONAL DISORDER
     Route: 048
  2. SEROQUEL XR [Suspect]
     Indication: DEPRESSION
     Route: 048
  3. SEROQUEL XR [Suspect]
     Dosage: 6000 MG ONCE
     Route: 048
     Dates: start: 20110421, end: 20110421
  4. SEROQUEL XR [Suspect]
     Dosage: 6000 MG ONCE
     Route: 048
     Dates: start: 20110421, end: 20110421
  5. SEROQUEL XR [Suspect]
     Indication: PSYCHOMOTOR HYPERACTIVITY
     Route: 048
  6. SEROQUEL XR [Suspect]
     Dosage: 6000 MG ONCE
     Route: 048
     Dates: start: 20110421, end: 20110421
  7. SEROQUEL XR [Suspect]
     Dosage: 6000 MG ONCE
     Route: 048
     Dates: start: 20110421, end: 20110421
  8. SEROQUEL XR [Suspect]
     Indication: ABNORMAL BEHAVIOUR
     Route: 048
  9. VELAXIN [Suspect]
     Indication: DEPRESSION
     Dosage: 28 TABLET OF 150 MG (4200 MG) + 28 TABLET OF 75 MG  (2100 MG)
     Route: 048
     Dates: start: 20110421, end: 20110421

REACTIONS (2)
  - MULTIPLE DRUG OVERDOSE INTENTIONAL [None]
  - SUICIDE ATTEMPT [None]
